FAERS Safety Report 6686138-7 (Version None)
Quarter: 2010Q2

REPORT INFORMATION
  Report Type: 
  Country: None (occurrence: None)
  Receive Date: 20100419
  Receipt Date: 20100407
  Transmission Date: 20101027
  Serious: Yes (Other)
  Sender: FDA-Public Use
  Company Number: PHHY2010GB18333

PATIENT
  Sex: Female

DRUGS (3)
  1. STALEVO 100 [Interacting]
     Indication: PARKINSON'S DISEASE
     Dosage: 75 MG, TID
     Route: 048
     Dates: start: 20090626, end: 20090918
  2. STALEVO 100 [Interacting]
     Dosage: 50 MG, TID
     Dates: start: 20090918
  3. NAPROXEN [Suspect]
     Dosage: PRN

REACTIONS (6)
  - ANAEMIA [None]
  - DRUG INTERACTION [None]
  - ORTHOSTATIC HYPOTENSION [None]
  - SYNCOPE [None]
  - VAGINAL HAEMORRHAGE [None]
  - WEIGHT DECREASED [None]
